FAERS Safety Report 17334530 (Version 1)
Quarter: 2020Q1

REPORT INFORMATION
  Report Type: Spontaneous
  Country: US (occurrence: US)
  Receive Date: 20200128
  Receipt Date: 20200128
  Transmission Date: 20200409
  Serious: No
  Sender: FDA-Public Use
  Company Number: US-PARATEK PHARMACEUTICALS, INC.-2019PTK00132

PATIENT
  Sex: Male

DRUGS (4)
  1. BACTRIM [Concomitant]
     Active Substance: SULFAMETHOXAZOLE\TRIMETHOPRIM
  2. ROCEPHIN [Concomitant]
     Active Substance: CEFTRIAXONE SODIUM
  3. NUZYRA [Suspect]
     Active Substance: OMADACYCLINE
     Dosage: ^MAINTENANCE THERAPY^
     Route: 048
  4. NUZYRA [Suspect]
     Active Substance: OMADACYCLINE
     Indication: SKIN INFECTION
     Dosage: ^LOADING DOSE^
     Route: 048

REACTIONS (1)
  - Nausea [Unknown]
